FAERS Safety Report 5558237-4 (Version None)
Quarter: 2007Q4

REPORT INFORMATION
  Report Type: 
  Country: None (occurrence: None)
  Receive Date: 20071214
  Receipt Date: 20071203
  Transmission Date: 20080405
  Serious: Yes (Hospitalization, Other)
  Sender: FDA-Public Use
  Company Number: US-PFIZER INC-2007102177

PATIENT
  Sex: Female

DRUGS (5)
  1. DILANTIN [Suspect]
     Indication: CONVULSION
  2. PHENYTOIN [Suspect]
     Indication: CONVULSION
  3. FOSAMAX [Suspect]
     Indication: BONE DISORDER
  4. OSCAL [Concomitant]
  5. CENTRUM SILVER [Concomitant]

REACTIONS (22)
  - ANAEMIA [None]
  - ANTICONVULSANT DRUG LEVEL DECREASED [None]
  - ARTHRALGIA [None]
  - ASTHENIA [None]
  - BODY HEIGHT DECREASED [None]
  - BONE PAIN [None]
  - CONSTIPATION [None]
  - CONVULSION [None]
  - DYSKINESIA [None]
  - FATIGUE [None]
  - HIP FRACTURE [None]
  - JOINT STIFFNESS [None]
  - MALAISE [None]
  - MASKED FACIES [None]
  - MUSCLE TWITCHING [None]
  - NERVOUSNESS [None]
  - OSTEOPOROSIS [None]
  - PARAESTHESIA [None]
  - SOMNOLENCE [None]
  - URINE OUTPUT INCREASED [None]
  - WEIGHT DECREASED [None]
  - WRIST FRACTURE [None]
